FAERS Safety Report 6203485-3 (Version None)
Quarter: 2009Q2

REPORT INFORMATION
  Report Type: 
  Country: None (occurrence: None)
  Receive Date: 20090521
  Receipt Date: 20090512
  Transmission Date: 20091009
  Serious: Yes (Death, Life-Threatening, Hospitalization)
  Sender: FDA-Public Use
  Company Number: US023642

PATIENT
  Age: 83 Year
  Sex: Male

DRUGS (2)
  1. TRISENOX [Suspect]
     Indication: ACUTE MYELOID LEUKAEMIA
     Dosage: DAYS 1-5 AND 8-12 (17 MG, 1 IN 1 D), INTRAVENOUS (NOT OTHERWISE SPECIFIED(
     Route: 042
     Dates: start: 20080312, end: 20080425
  2. CYTARABINE (CYTARABINE) (10 MILLIGRAM(S)/ SQ.METER, INJECTION) [Concomitant]

REACTIONS (7)
  - GASTROINTESTINAL HAEMORRHAGE [None]
  - HAEMOPTYSIS [None]
  - LUNG CONSOLIDATION [None]
  - PLEURAL EFFUSION [None]
  - PNEUMONIA [None]
  - RENAL FAILURE [None]
  - RESPIRATORY FAILURE [None]
